FAERS Safety Report 9397565 (Version 1)
Quarter: 2013Q3

REPORT INFORMATION
  Report Type: Spontaneous
  Country: US (occurrence: None)
  Receive Date: 20130711
  Receipt Date: 20130711
  Transmission Date: 20140515
  Serious: Yes (Other)
  Sender: FDA-Public Use
  Company Number: None

PATIENT
  Age: 60 Year
  Sex: Female
  Weight: 53 kg

DRUGS (2)
  1. FOSAPREPITANT [Suspect]
     Indication: PREMEDICATION
     Dosage: 150 MG  X 1  IV
     Route: 042
     Dates: start: 20130411
  2. FOSAPREPITANT [Suspect]
     Indication: CHEMOTHERAPY
     Dosage: 150 MG  X 1  IV
     Route: 042
     Dates: start: 20130411

REACTIONS (6)
  - Chest pain [None]
  - Nausea [None]
  - Hot flush [None]
  - Muscle tightness [None]
  - Toothache [None]
  - Drug hypersensitivity [None]
